FAERS Safety Report 6062351-7 (Version None)
Quarter: 2009Q1

REPORT INFORMATION
  Report Type: 
  Country: None (occurrence: None)
  Receive Date: 20090203
  Receipt Date: 20090121
  Transmission Date: 20090719
  Serious: Yes (Death)
  Sender: FDA-Public Use
  Company Number: US-JNJFOC-20090107055

PATIENT
  Sex: Male
  Weight: 73.48 kg

DRUGS (3)
  1. FENTANYL-75 [Suspect]
     Indication: DRUG USE FOR UNKNOWN INDICATION
     Route: 062
  2. OPIATES [Concomitant]
  3. HYDROCODONE [Concomitant]

REACTIONS (1)
  - HEAD INJURY [None]
